FAERS Safety Report 6213696-9 (Version None)
Quarter: 2009Q2

REPORT INFORMATION
  Report Type: 
  Country: None (occurrence: None)
  Receive Date: 20090603
  Receipt Date: 20090526
  Transmission Date: 20091009
  Serious: Yes (Death, Other)
  Sender: FDA-Public Use
  Company Number: PHHY2009DE20920

PATIENT
  Age: 44 Year
  Sex: Female

DRUGS (4)
  1. IMATINIB MESYLATE [Suspect]
     Indication: CHRONIC MYELOID LEUKAEMIA
     Dosage: 600 MG DAILY
     Dates: start: 20031201
  2. IMATINIB MESYLATE [Suspect]
     Dosage: 400 MG DAILY
     Dates: start: 20041201
  3. IMATINIB MESYLATE [Suspect]
     Dosage: 800 MG
     Dates: start: 20051201
  4. CYCLOSPORINE [Concomitant]
     Indication: STEM CELL TRANSPLANT
     Dosage: UNK
     Dates: start: 20040801

REACTIONS (9)
  - BLAST CRISIS IN MYELOGENOUS LEUKAEMIA [None]
  - BONE NEOPLASM [None]
  - CHLOROMA [None]
  - DISEASE PROGRESSION [None]
  - FRACTURE DISPLACEMENT [None]
  - GRAFT VERSUS HOST DISEASE [None]
  - MUSCULOSKELETAL PAIN [None]
  - OSTEOSYNTHESIS [None]
  - PNEUMONIA [None]
